FAERS Safety Report 22387680 (Version 1)
Quarter: 2023Q2

REPORT INFORMATION
  Report Type: Spontaneous
  Country: US (occurrence: US)
  Receive Date: 20230531
  Receipt Date: 20230531
  Transmission Date: 20230722
  Serious: No
  Sender: FDA-Public Use
  Company Number: US-ALNYLAM PHARMACEUTICALS, INC.-ALN-2023-002331

PATIENT

DRUGS (2)
  1. OXLUMO [Suspect]
     Active Substance: LUMASIRAN
     Indication: Product used for unknown indication
     Dosage: 378 MILLIGRAM (3 VIALS AND 1 VIAL)
     Route: 058
     Dates: start: 20230303
  2. OXLUMO [Suspect]
     Active Substance: LUMASIRAN
     Dosage: 378 MILLIGRAM
     Route: 058
     Dates: start: 20230406

REACTIONS (1)
  - Injection site hypersensitivity [Not Recovered/Not Resolved]
